FAERS Safety Report 5726327-9 (Version None)
Quarter: 2008Q2

REPORT INFORMATION
  Report Type: 
  Country: None (occurrence: None)
  Receive Date: 20080502
  Receipt Date: 20080415
  Transmission Date: 20081010
  Serious: Yes (Hospitalization)
  Sender: FDA-Public Use
  Company Number: ES-BOEHRINGER INGELHEIM GMBH, GERMANY-2008-ES-00551SC

PATIENT
  Age: 46 Year
  Sex: Female

DRUGS (1)
  1. PAROCIN [Suspect]
     Indication: ARTHRALGIA
     Route: 048
     Dates: start: 20071121, end: 20071221

REACTIONS (5)
  - CHOLURIA [None]
  - HEPATITIS ACUTE [None]
  - JAUNDICE [None]
  - PRURITUS [None]
  - RASH [None]
